FAERS Safety Report 11057961 (Version 1)
Quarter: 2015Q2

REPORT INFORMATION
  Report Type: Spontaneous
  Country: None (occurrence: None)
  Receive Date: 20150413
  Receipt Date: 20150413
  Transmission Date: 20150821
  Serious: Yes (Hospitalization)
  Sender: FDA-Public Use
  Company Number: GTI003120

PATIENT
  Age: 75 Year
  Sex: Female

DRUGS (1)
  1. GAMUNEX-C [Suspect]
     Active Substance: HUMAN IMMUNOGLOBULIN G
     Indication: PRODUCT USED FOR UNKNOWN INDICATION
     Route: 042
     Dates: start: 2014

REACTIONS (7)
  - Malaise [None]
  - Dysstasia [None]
  - Confusional state [None]
  - Infection reactivation [None]
  - Dizziness [None]
  - Fatigue [None]
  - Lyme disease [None]

NARRATIVE: CASE EVENT DATE: 2014
